FAERS Safety Report 5719441-5 (Version None)
Quarter: 2008Q2

REPORT INFORMATION
  Report Type: 
  Country: None (occurrence: None)
  Receive Date: 20080428
  Receipt Date: 20080423
  Transmission Date: 20081010
  Serious: Yes (Hospitalization)
  Sender: FDA-Public Use
  Company Number: JP-BRISTOL-MYERS SQUIBB COMPANY-14163166

PATIENT
  Age: 65 Year
  Sex: Female

DRUGS (2)
  1. TAXOL [Suspect]
     Indication: BREAST CANCER METASTATIC
     Route: 041
     Dates: end: 20080417
  2. HERCEPTIN [Concomitant]
     Route: 042
     Dates: start: 20080417, end: 20080417

REACTIONS (1)
  - PULMONARY OEDEMA [None]
